FAERS Safety Report 5242937-X (Version None)
Quarter: 2007Q1

REPORT INFORMATION
  Report Type: 
  Country: None (occurrence: None)
  Receive Date: 20070215
  Receipt Date: 20070206
  Transmission Date: 20070707
  Serious: Yes (Other)
  Sender: FDA-Public Use
  Company Number: 237276K06USA

PATIENT
  Age: 65 Year
  Sex: Female

DRUGS (4)
  1. REBIF [Suspect]
     Indication: MULTIPLE SCLEROSIS
     Dosage: 44 MCG, 3 IN 1 WEEKS, SUBCUTANEOUS
     Route: 058
     Dates: start: 20030820
  2. STEROIDS (CORTICOSTEROID NOS) [Concomitant]
  3. ATENOLOL [Concomitant]
  4. NORVASC [Concomitant]

REACTIONS (2)
  - METASTASES TO LUNG [None]
  - OVARIAN CANCER [None]
